FAERS Safety Report 9948928 (Version 1)
Quarter: 2014Q1

REPORT INFORMATION
  Report Type: Spontaneous
  Country: SE (occurrence: SE)
  Receive Date: 20140304
  Receipt Date: 20140304
  Transmission Date: 20141002
  Serious: Yes (Hospitalization, Other)
  Sender: FDA-Public Use
  Company Number: SE-AMGEN-SWESP2014014905

PATIENT
  Age: 71 Year
  Sex: Female

DRUGS (10)
  1. ENBREL [Suspect]
     Indication: RHEUMATOID ARTHRITIS
     Dosage: 50 MG, WEEKLY
     Route: 065
     Dates: start: 1999, end: 2011
  2. METHOTREXATE SODIUM [Suspect]
     Indication: PRODUCT USED FOR UNKNOWN INDICATION
     Dosage: 12.5 MG WEEKLY
     Route: 065
     Dates: start: 1990, end: 2011
  3. MABTHERA [Suspect]
     Indication: RHEUMATOID ARTHRITIS
     Dosage: 500 MG, UNK
     Route: 065
     Dates: start: 201112
  4. MABTHERA [Suspect]
     Dosage: 500 MG, UNK
     Route: 065
     Dates: start: 20120104
  5. CALCICHEW-D3 [Suspect]
     Indication: PRODUCT USED FOR UNKNOWN INDICATION
     Dosage: 1 DF, 2X/DAY
     Route: 065
  6. FOLACIN                            /00198401/ [Concomitant]
     Dosage: UNK
  7. ORUDIS [Concomitant]
     Dosage: UNK
  8. ACTIVELLE [Concomitant]
     Dosage: UNK
  9. HERACILLIN                         /00239102/ [Concomitant]
     Dosage: UNK
  10. VALTREX [Concomitant]
     Dosage: UNK

REACTIONS (1)
  - Anal cancer [Unknown]
